FAERS Safety Report 9711936 (Version 1)
Quarter: 2013Q4

REPORT INFORMATION
  Report Type: Spontaneous
  Country: US (occurrence: US)
  Receive Date: 20131126
  Receipt Date: 20131126
  Transmission Date: 20140711
  Serious: No
  Sender: FDA-Public Use
  Company Number: US-BAXTER-2013BAX046679

PATIENT
  Age: 60 Year
  Sex: Male

DRUGS (4)
  1. DIANEAL LOW CALCIUM [Suspect]
     Indication: RENAL FAILURE CHRONIC
     Route: 033
     Dates: start: 20131010
  2. DIANEAL LOW CALCIUM [Suspect]
     Indication: RENAL FAILURE CHRONIC
     Route: 033
     Dates: start: 20131010
  3. DIANEAL LOW CALCIUM (ULTRABAG) [Suspect]
     Indication: RENAL FAILURE CHRONIC
     Route: 033
     Dates: start: 20131010
  4. VANCOMYCIN [Suspect]
     Indication: STAPHYLOCOCCAL SEPSIS
     Route: 042
     Dates: start: 20131008

REACTIONS (2)
  - Fluid overload [Recovering/Resolving]
  - Hypertension [Recovering/Resolving]
